FAERS Safety Report 6755460-8 (Version None)
Quarter: 2010Q2

REPORT INFORMATION
  Report Type: 
  Country: None (occurrence: None)
  Receive Date: 20100604
  Receipt Date: 20100528
  Transmission Date: 20101027
  Serious: Yes (Other)
  Sender: FDA-Public Use
  Company Number: JP-ASTRAZENECA-2010SE24955

PATIENT
  Age: 60 Year
  Sex: Female

DRUGS (2)
  1. DIPRIVAN [Suspect]
     Indication: INDUCTION AND MAINTENANCE OF ANAESTHESIA
     Dosage: 30-40 ML IV, 1-3 MG/KG/HR
     Route: 042
  2. DROPERIDOL [Concomitant]
     Dosage: 2.5 MG IV 5 MINUTES BEFORE
     Route: 042

REACTIONS (3)
  - BLOOD PRESSURE DECREASED [None]
  - BRADYCARDIA [None]
  - RESPIRATORY DEPRESSION [None]
